FAERS Safety Report 5471090-2 (Version None)
Quarter: 2007Q3

REPORT INFORMATION
  Report Type: 
  Country: None (occurrence: None)
  Receive Date: 20070928
  Receipt Date: 20070926
  Transmission Date: 20080115
  Serious: Yes (Death, Other)
  Sender: FDA-Public Use
  Company Number: US-ASTRAZENECA-2006UW12018

PATIENT
  Sex: Male
  Weight: 163.6 kg

DRUGS (5)
  1. SEROQUEL [Suspect]
     Indication: DEPRESSION
     Route: 048
  2. SEROQUEL [Suspect]
     Indication: ANXIETY
     Route: 048
  3. ZYPREXA [Suspect]
     Dosage: 2.5 - 20 MG
     Dates: start: 19991001
  4. ZYPREXA [Suspect]
     Dosage: 2.5 - 20 MG
     Dates: start: 20050301, end: 20060601
  5. GEODON [Concomitant]

REACTIONS (3)
  - DEATH [None]
  - PANCREATITIS [None]
  - TYPE 2 DIABETES MELLITUS [None]
